FAERS Safety Report 7513832-8 (Version None)
Quarter: 2011Q2

REPORT INFORMATION
  Report Type: 
  Country: None (occurrence: None)
  Receive Date: 20110531
  Receipt Date: 20110517
  Transmission Date: 20111010
  Serious: Yes (Other)
  Sender: FDA-Public Use
  Company Number: PHHY2011MX42677

PATIENT
  Age: 12 Year
  Sex: Male

DRUGS (6)
  1. PREDNISONE [Concomitant]
     Dosage: 0.75 MG/KG/DAY
  2. CYCLOSPORINE [Suspect]
     Indication: RENAL TRANSPLANT
     Dosage: 7.9 MG/KG, UNK
     Dates: start: 20000701, end: 20010801
  3. AZATHIOPRINE [Concomitant]
     Dosage: 1.8 MG/KG/DAY
  4. VERAPAMIL [Concomitant]
     Dosage: 2 MG/KG/DAY
  5. CLONIDINE [Concomitant]
     Indication: RENAL TRANSPLANT
     Dosage: 7.6 MCG/KG/DAY
  6. GANCYLCOVIR [Concomitant]
     Dosage: 100 MG TWICE PER WEEK
     Route: 042

REACTIONS (2)
  - DIABETES MELLITUS [None]
  - TOXICITY TO VARIOUS AGENTS [None]
